FAERS Safety Report 19788263 (Version 2)
Quarter: 2021Q4

REPORT INFORMATION
  Report Type: Report from Study
  Country: MY (occurrence: MY)
  Receive Date: 20210903
  Receipt Date: 20211102
  Transmission Date: 20220303
  Serious: Yes (Death, Hospitalization)
  Sender: FDA-Public Use
  Company Number: MY-NOVARTISPH-NVSC2021MY198894

PATIENT
  Age: 25 Year
  Sex: Female
  Weight: 46 kg

DRUGS (5)
  1. NELARABINE [Suspect]
     Active Substance: NELARABINE
     Indication: Acute lymphocytic leukaemia refractory
     Dosage: 2000 MG, QD
     Route: 042
     Dates: start: 20210426, end: 20210629
  2. PIPERACILLIN SODIUM\TAZOBACTAM SODIUM [Concomitant]
     Active Substance: PIPERACILLIN SODIUM\TAZOBACTAM SODIUM
     Indication: Febrile neutropenia
     Dosage: 4.5 G, QID
     Route: 065
     Dates: start: 20210611, end: 20210615
  3. CEFTAZIDIME [Concomitant]
     Active Substance: CEFTAZIDIME
     Indication: Febrile neutropenia
     Dosage: 2 G (TDS)
     Route: 065
     Dates: start: 20210615, end: 20210629
  4. AMIKACIN [Concomitant]
     Active Substance: AMIKACIN
     Indication: Febrile neutropenia
     Dosage: 10 G, QD
     Route: 065
     Dates: start: 20210621, end: 20210627
  5. CEFEPIME [Concomitant]
     Active Substance: CEFEPIME HYDROCHLORIDE
     Indication: Febrile neutropenia
     Dosage: 2 G (TDS)
     Route: 065
     Dates: start: 202107, end: 20210718

REACTIONS (2)
  - Febrile neutropenia [Fatal]
  - COVID-19 [Recovered/Resolved with Sequelae]

NARRATIVE: CASE EVENT DATE: 20210702
